FAERS Safety Report 6127878-8 (Version None)
Quarter: 2009Q1

REPORT INFORMATION
  Report Type: 
  Country: None (occurrence: None)
  Receive Date: 20090320
  Receipt Date: 20090320
  Transmission Date: 20090719
  Serious: Yes (Other)
  Sender: FDA-Public Use
  Company Number: None

PATIENT
  Sex: Male

DRUGS (1)
  1. NORTRIPTYLINE HCL [Suspect]
     Indication: DEPRESSION
     Dosage: 10MG PO BID
     Route: 048
     Dates: start: 20090310, end: 20090311

REACTIONS (1)
  - AGITATION [None]
